FAERS Safety Report 6532882-1 (Version None)
Quarter: 2010Q1

REPORT INFORMATION
  Report Type: 
  Country: None (occurrence: None)
  Receive Date: 20100111
  Receipt Date: 20091231
  Transmission Date: 20100710
  Serious: Yes (Hospitalization)
  Sender: FDA-Public Use
  Company Number: US-ELI_LILLY_AND_COMPANY-US200910005635

PATIENT
  Sex: Male

DRUGS (11)
  1. FORTEO [Suspect]
     Indication: OSTEOPOROSIS
     Dosage: 20 UG, DAILY (1/D)
     Dates: start: 20090801, end: 20090901
  2. LISINOPRIL [Concomitant]
  3. VERAPAMIL [Concomitant]
  4. BABY ASPIRIN [Concomitant]
  5. SIMVASTATIN [Concomitant]
  6. PREDNISONE [Concomitant]
     Dosage: UNK, DAILY (1/D)
  7. VITAMIN D [Concomitant]
  8. VITAMIN B1 TAB [Concomitant]
  9. MULTI-VITAMIN [Concomitant]
  10. FOLIC ACID [Concomitant]
  11. FOSAMAX [Concomitant]
     Dates: start: 20090101

REACTIONS (6)
  - ABDOMINAL PAIN UPPER [None]
  - CHRONIC OBSTRUCTIVE PULMONARY DISEASE [None]
  - DYSPNOEA [None]
  - MALAISE [None]
  - NAUSEA [None]
  - PAIN [None]
